FAERS Safety Report 21452435 (Version 2)
Quarter: 2022Q4

REPORT INFORMATION
  Report Type: Spontaneous
  Country: CN (occurrence: None)
  Receive Date: 20221013
  Receipt Date: 20221017
  Transmission Date: 20230112
  Serious: Yes (Hospitalization, Other)
  Sender: FDA-Public Use
  Company Number: 2022A340790

PATIENT
  Age: 18262 Day
  Sex: Female
  Weight: 51 kg

DRUGS (1)
  1. DAPAGLIFLOZIN [Suspect]
     Active Substance: DAPAGLIFLOZIN
     Indication: Diabetes mellitus
     Route: 048
     Dates: start: 20220925, end: 20221001

REACTIONS (6)
  - Weight decreased [Recovering/Resolving]
  - Dizziness [Recovering/Resolving]
  - Discomfort [Unknown]
  - Fall [Unknown]
  - Injury [Unknown]
  - Diabetes mellitus [Unknown]

NARRATIVE: CASE EVENT DATE: 20220929
